FAERS Safety Report 4613633-4 (Version None)
Quarter: 2005Q1

REPORT INFORMATION
  Report Type: 
  Country: None (occurrence: None)
  Receive Date: 20050318
  Receipt Date: 20050318
  Transmission Date: 20050727
  Serious: Yes (Hospitalization)
  Sender: FDA-Public Use
  Company Number: None

PATIENT
  Sex: Female
  Weight: 77.1115 kg

DRUGS (11)
  1. COUMADIN [Suspect]
     Indication: ANTICOAGULANT THERAPY
     Dosage: PO    PRIOR TO ADMISSION
     Route: 048
  2. VITAMIN C [Concomitant]
  3. MULTIVITAMIN [Concomitant]
  4. ACTOS [Concomitant]
  5. ACCUPRIL [Concomitant]
  6. LESCOL [Concomitant]
  7. TYLENOL (CAPLET) [Concomitant]
  8. TOPROL-XL [Concomitant]
  9. NORVASC [Concomitant]
  10. LEVAQUIN [Concomitant]
  11. LASIX [Concomitant]

REACTIONS (1)
  - COAGULOPATHY [None]
